FAERS Safety Report 9392952 (Version 5)
Quarter: 2014Q1

REPORT INFORMATION
  Report Type: Spontaneous
  Country: US (occurrence: US)
  Receive Date: 20130710
  Receipt Date: 20140129
  Transmission Date: 20141002
  Serious: Yes (Hospitalization)
  Sender: FDA-Public Use
  Company Number: US-PFIZER INC-2013201885

PATIENT
  Age: 48 Year
  Sex: Female
  Weight: 104 kg

DRUGS (3)
  1. LYRICA [Suspect]
     Indication: FIBROMYALGIA
     Dosage: 150 MG, 2X/DAY
  2. LYRICA [Suspect]
     Indication: NEUROPATHY PERIPHERAL
  3. LASIX [Concomitant]
     Dosage: 120 MG, 1X/DAY

REACTIONS (3)
  - Fall [Unknown]
  - Drug withdrawal syndrome [Unknown]
  - Pain [Unknown]
